FAERS Safety Report 6835229-6 (Version None)
Quarter: 2010Q3

REPORT INFORMATION
  Report Type: 
  Country: None (occurrence: None)
  Receive Date: 20100713
  Receipt Date: 20100701
  Transmission Date: 20110219
  Serious: Yes (Other)
  Sender: FDA-Public Use
  Company Number: US-BAYER-201026973NA

PATIENT
  Age: 43 Year
  Sex: Female

DRUGS (1)
  1. MIRENA [Suspect]
     Indication: MENORRHAGIA
     Dosage: FREQUENCY CONTINUOUS
     Route: 015
     Dates: start: 20100629, end: 20100630

REACTIONS (5)
  - DIZZINESS [None]
  - NAUSEA [None]
  - PALLOR [None]
  - PELVIC PAIN [None]
  - UNEVALUABLE EVENT [None]
